FAERS Safety Report 4935036-5 (Version None)
Quarter: 2006Q1

REPORT INFORMATION
  Report Type: 
  Country: None (occurrence: None)
  Receive Date: 20060302
  Receipt Date: 20060214
  Transmission Date: 20060701
  Serious: Yes (Other)
  Sender: FDA-Public Use
  Company Number: US200602002983

PATIENT
  Age: 14 Year
  Sex: Male

DRUGS (1)
  1. HUMAN INSULIN (RDNA ORIGIN) (HUMAN INSULIN  (RDNA ORIGIN) [Suspect]
     Indication: DIABETES MELLITUS

REACTIONS (2)
  - HYPOGLYCAEMIA UNAWARENESS [None]
  - ROAD TRAFFIC ACCIDENT [None]
